FAERS Safety Report 16995995 (Version 1)
Quarter: 2019Q4

REPORT INFORMATION
  Report Type: Spontaneous
  Country: GB (occurrence: GB)
  Receive Date: 20191105
  Receipt Date: 20191105
  Transmission Date: 20200122
  Serious: Yes (Other)
  Sender: FDA-Public Use
  Company Number: GB-ALLERGAN-1944326US

PATIENT
  Sex: Female

DRUGS (14)
  1. BISOPROLOL [Concomitant]
     Active Substance: BISOPROLOL
     Dosage: TAKE IN MORNING
  2. OMEPRAZOLE. [Concomitant]
     Active Substance: OMEPRAZOLE
  3. LOPERAMIDE [Concomitant]
     Active Substance: LOPERAMIDE
  4. AMLODIPINE [Concomitant]
     Active Substance: AMLODIPINE BESYLATE
     Dosage: TAKE IN MORNING
  5. DALBAVANCIN HCL UNK [Suspect]
     Active Substance: DALBAVANCIN HYDROCHLORIDE
     Indication: OSTEOMYELITIS
     Route: 042
     Dates: start: 20191011, end: 20191011
  6. FORCEVAL [Concomitant]
     Active Substance: FOLIC ACID\IRON\MINERALS\VITAMINS
     Dosage: TAKE IN MORNING
  7. FOLIC ACID. [Concomitant]
     Active Substance: FOLIC ACID
     Dosage: TAKE IN MORNING
  8. DULOXETINE. [Concomitant]
     Active Substance: DULOXETINE
  9. BUMETANIDE. [Concomitant]
     Active Substance: BUMETANIDE
     Dosage: 2MG IN MORNING, 1 MG MIDDAY
  10. QUININE [Concomitant]
     Active Substance: QUININE
     Dosage: TAKE AT NIGHT
  11. RANITIDINE. [Concomitant]
     Active Substance: RANITIDINE
     Dosage: 600 MG, QD
  12. COLECALCIFEROL [Concomitant]
     Active Substance: CHOLECALCIFEROL
  13. COCODAMOL [Concomitant]
     Active Substance: ACETAMINOPHEN\CODEINE PHOSPHATE
     Dosage: 30/500MG AS NECESSARY
  14. FENTANYL. [Concomitant]
     Active Substance: FENTANYL
     Dosage: 50 PATCH 72 HOURLY

REACTIONS (7)
  - Dysarthria [Recovered/Resolved]
  - Dyspnoea [Recovered/Resolved]
  - Peripheral swelling [Recovered/Resolved]
  - Pruritus [Recovered/Resolved]
  - Decreased appetite [Not Recovered/Not Resolved]
  - Insomnia [Not Recovered/Not Resolved]
  - Swelling face [Recovered/Resolved]

NARRATIVE: CASE EVENT DATE: 20191011
